FAERS Safety Report 4472895-7 (Version None)
Quarter: 2004Q4

REPORT INFORMATION
  Report Type: 
  Country: None (occurrence: None)
  Receive Date: 20041012
  Receipt Date: 20041012
  Transmission Date: 20050328
  Serious: Yes (Hospitalization)
  Sender: FDA-Public Use
  Company Number: None

PATIENT
  Age: 83 Year
  Sex: Male
  Weight: 71.6 kg

DRUGS (1)
  1. ASPIRIN [Suspect]
     Indication: ATRIAL FLUTTER
     Dosage: 325 MG, 325 MG QD, ORAL
     Route: 048
     Dates: start: 20040921, end: 20040927

REACTIONS (1)
  - GASTROINTESTINAL HAEMORRHAGE [None]
